FAERS Safety Report 8352253-5 (Version None)
Quarter: 2012Q2

REPORT INFORMATION
  Report Type: 
  Country: None (occurrence: None)
  Receive Date: 20120511
  Receipt Date: 20120501
  Transmission Date: 20120825
  Serious: Yes (Other)
  Sender: FDA-Public Use
  Company Number: US-JNJFOC-20120501590

PATIENT

DRUGS (3)
  1. STELARA [Suspect]
     Indication: PYODERMA GANGRENOSUM
     Route: 058
  2. STELARA [Suspect]
     Route: 058
  3. STELARA [Suspect]
     Route: 058

REACTIONS (2)
  - COLON CANCER METASTATIC [None]
  - OFF LABEL USE [None]
